FAERS Safety Report 20505334 (Version 2)
Quarter: 2022Q1

REPORT INFORMATION
  Report Type: Spontaneous
  Country: US (occurrence: US)
  Receive Date: 20220223
  Receipt Date: 20220302
  Transmission Date: 20220423
  Serious: No
  Sender: FDA-Public Use
  Company Number: US-GRANULES-US-2022GRASPO00026

PATIENT
  Sex: Female
  Weight: 117 kg

DRUGS (1)
  1. METFORMIN HYDROCHLORIDE [Suspect]
     Active Substance: METFORMIN HYDROCHLORIDE
     Indication: Product used for unknown indication
     Route: 048
     Dates: start: 202104, end: 20220216

REACTIONS (5)
  - Urine odour abnormal [Recovered/Resolved]
  - Skin odour abnormal [Recovered/Resolved]
  - Product size issue [Unknown]
  - Product shape issue [Unknown]
  - Product odour abnormal [Unknown]
